FAERS Safety Report 6118737-5 (Version None)
Quarter: 2009Q1

REPORT INFORMATION
  Report Type: 
  Country: None (occurrence: None)
  Receive Date: 20090314
  Receipt Date: 20090226
  Transmission Date: 20090719
  Serious: No
  Sender: FDA-Public Use
  Company Number: US-ABBOTT-09P-163-0559599-00

PATIENT
  Sex: Female
  Weight: 99.88 kg

DRUGS (8)
  1. HUMIRA [Suspect]
     Indication: PSORIATIC ARTHROPATHY
     Route: 058
     Dates: start: 20080801
  2. HUMIRA [Suspect]
     Indication: PSORIATIC ARTHROPATHY
     Route: 058
     Dates: start: 20090226
  3. METHOCARBAMOL [Concomitant]
     Indication: ARTHRITIS
     Route: 048
  4. TRAZODONE HCL [Concomitant]
     Indication: INSOMNIA
     Route: 048
  5. MISOPROSTOL [Concomitant]
     Indication: ARTHRITIS
     Route: 048
  6. NABUMETINE [Concomitant]
     Indication: ARTHRITIS
     Route: 048
  7. LEVOTHYROXINE SODIUM [Concomitant]
     Indication: HYPOTHYROIDISM
     Route: 048
  8. ACIPHEX [Concomitant]
     Indication: GASTROOESOPHAGEAL REFLUX DISEASE
     Route: 048

REACTIONS (2)
  - INJECTION SITE PAIN [None]
  - PSORIASIS [None]
